FAERS Safety Report 16561399 (Version 1)
Quarter: 2019Q3

REPORT INFORMATION
  Report Type: Spontaneous
  Country: DE (occurrence: DE)
  Receive Date: 20190711
  Receipt Date: 20190711
  Transmission Date: 20191004
  Serious: Yes (Hospitalization)
  Sender: FDA-Public Use
  Company Number: DE-TEVA-2019-DE-1075082

PATIENT
  Age: 75 Year
  Sex: Male

DRUGS (18)
  1. NITRENDIPINE [Suspect]
     Active Substance: NITRENDIPINE
     Dosage: 20 MG, 1-0-1-0
     Route: 065
  2. CLOPIDOGREL [Concomitant]
     Active Substance: CLOPIDOGREL BISULFATE
     Dosage: 75 MG, 1-0-0-0
  3. PREGABALIN. [Suspect]
     Active Substance: PREGABALIN
     Dosage: 75 MG, 1-0-0-0
  4. AMIODARON [Concomitant]
     Active Substance: AMIODARONE
     Dosage: 200 MG, 1-0-0-0
  5. ASS 100 [Concomitant]
     Active Substance: ASPIRIN
     Dosage: 100 MG, 1-0-0-0
  6. VALSARTAN. [Suspect]
     Active Substance: VALSARTAN
     Dosage: 160 MG, 1-0-1-0
     Route: 065
  7. FUROSEMIDE. [Suspect]
     Active Substance: FUROSEMIDE
     Dosage: 40 MG, 1-1-0-0
     Route: 065
  8. URAPIDIL [Suspect]
     Active Substance: URAPIDIL
     Dosage: 60 MG, 1-1-1-0
     Route: 065
  9. KALINOR BRAUSETABLETTEN [Concomitant]
     Dosage: BY POTASSIUM LEVEL
  10. CLONIDINE. [Suspect]
     Active Substance: CLONIDINE
     Dosage: 150 MG, 1-0-0-1
     Route: 065
  11. DAXAS 500MIKROGRAMM [Concomitant]
     Dosage: 500 ?G, 1-0-0-0
  12. MACROGOL [Concomitant]
     Active Substance: POLYETHYLENE GLYCOLS
     Dosage: 1-0-1-0
  13. METOPROLOL. [Suspect]
     Active Substance: METOPROLOL
     Dosage: 95 MG, 1-0-1-0
     Route: 065
  14. DYTIDE H 50/25 [Suspect]
     Active Substance: HYDROCHLOROTHIAZIDE\TRIAMTERENE
     Dosage: 25|50 MG, 1-0-0-0
     Route: 065
  15. ATROVENT [Concomitant]
     Active Substance: IPRATROPIUM BROMIDE
     Dosage: 4 X
     Route: 055
  16. PANTOPRAZOL [Concomitant]
     Active Substance: PANTOPRAZOLE SODIUM
     Dosage: 40 MG, 1-0-1-0
  17. ACTRAPID [Concomitant]
     Active Substance: INSULIN HUMAN
     Dosage: NK IE, 12-2-4-0
  18. L-THYROXIN 50 [Concomitant]
     Active Substance: LEVOTHYROXINE SODIUM
     Dosage: 50 ?G, 1-0-0-0

REACTIONS (3)
  - Syncope [Unknown]
  - Fall [Unknown]
  - Dizziness [Unknown]
